FAERS Safety Report 9245034 (Version 1)
Quarter: 2013Q2

REPORT INFORMATION
  Report Type: Spontaneous
  Country: AU (occurrence: AU)
  Receive Date: 20130422
  Receipt Date: 20130422
  Transmission Date: 20140414
  Serious: No
  Sender: FDA-Public Use
  Company Number: AU-JNJFOC-20130408523

PATIENT
  Sex: Female

DRUGS (1)
  1. DUROGESIC [Suspect]
     Indication: ANALGESIC THERAPY
     Route: 062

REACTIONS (2)
  - Drug administration error [Unknown]
  - Drug prescribing error [Unknown]
